FAERS Safety Report 4852570-7 (Version None)
Quarter: 2005Q4

REPORT INFORMATION
  Report Type: 
  Country: None (occurrence: None)
  Receive Date: 20051123
  Receipt Date: 20050209
  Transmission Date: 20060501
  Serious: Yes (Hospitalization)
  Sender: FDA-Public Use
  Company Number: 05USA0062

PATIENT
  Age: 50 Year
  Sex: Male
  Weight: 94 kg

DRUGS (4)
  1. GLIADEL [Suspect]
     Indication: GLIOBLASTOMA MULTIFORME
     Dosage: 7.7 MG/WAFER MAXIMUM OF 8
     Dates: start: 20040924
  2. O6 BENZYLGUANINE (ANTINEOPLASTIC AGENTS) (INJECTION FOR INFUSION) [Suspect]
     Indication: GLIOBLASTOMA MULTIFORME
     Dosage: 120 MG/M*2 BOLUS FOLLOWED BY 30 MG/M*2 INFUSION 5 DAYS ; SEE IMAGE
     Route: 040
     Dates: start: 20040924, end: 20040929
  3. TEGRETOL [Concomitant]
  4. DECADRON [Concomitant]

REACTIONS (1)
  - PULMONARY EMBOLISM [None]
